FAERS Safety Report 24587478 (Version 1)
Quarter: 2024Q4

REPORT INFORMATION
  Report Type: Report from Study
  Country: CA (occurrence: CA)
  Receive Date: 20241107
  Receipt Date: 20241107
  Transmission Date: 20250115
  Serious: Yes (Other)
  Sender: TAKEDA
  Company Number: CA-TAKEDA-2024TUS110314

PATIENT
  Sex: Male
  Weight: 24.6 kg

DRUGS (3)
  1. HUMAN IMMUNOGLOBULIN G\HYALURONIDASE RECOMBINANT HUMAN [Suspect]
     Active Substance: HUMAN IMMUNOGLOBULIN G\HYALURONIDASE (HUMAN RECOMBINANT)
     Indication: Primary immunodeficiency syndrome
     Dosage: 10 GRAM, Q4WEEKS
     Route: 058
     Dates: start: 20240916
  2. PREVACID [Concomitant]
     Active Substance: LANSOPRAZOLE
     Dosage: 30 MILLIGRAM, QD
     Route: 065
  3. TOPICORT [Concomitant]
     Active Substance: DESOXIMETASONE
     Dosage: UNK
     Route: 065

REACTIONS (4)
  - Zhu-Tokita-Takenouchi-Kim syndrome [Not Recovered/Not Resolved]
  - Galactosaemia [Not Recovered/Not Resolved]
  - Drooling [Not Recovered/Not Resolved]
  - Hypertension [Not Recovered/Not Resolved]
